FAERS Safety Report 10668802 (Version 2)
Quarter: 2014Q4

REPORT INFORMATION
  Report Type: Report from Study
  Country: US (occurrence: US)
  Receive Date: 20141222
  Receipt Date: 20141222
  Transmission Date: 20150529
  Serious: Yes (Hospitalization, Other)
  Sender: FDA-Public Use
  Company Number: US-SA-2014SA111842

PATIENT
  Age: 75 Year
  Sex: Male

DRUGS (1)
  1. AUBAGIO [Suspect]
     Active Substance: TERIFLUNOMIDE
     Indication: MULTIPLE SCLEROSIS
     Route: 048
     Dates: start: 20130808

REACTIONS (4)
  - Cystitis [Not Recovered/Not Resolved]
  - Nerve injury [Unknown]
  - Carpal tunnel syndrome [Unknown]
  - Asthenia [Unknown]
